FAERS Safety Report 6448758-4 (Version None)
Quarter: 2009Q4

REPORT INFORMATION
  Report Type: 
  Country: None (occurrence: None)
  Receive Date: 20091120
  Receipt Date: 20090922
  Transmission Date: 20100525
  Serious: No
  Sender: FDA-Public Use
  Company Number: US-KINGPHARMUSA00001-K200901175

PATIENT
  Age: 36 Year
  Sex: Male

DRUGS (2)
  1. FLECTOR [Suspect]
     Indication: BACK PAIN
     Dosage: 1 PATCH, BID
     Route: 061
     Dates: start: 20090101, end: 20090101
  2. GABAPENTIN [Concomitant]
     Indication: PAIN
     Dosage: UNK

REACTIONS (1)
  - APHTHOUS STOMATITIS [None]
